FAERS Safety Report 7222430-5 (Version None)
Quarter: 2011Q1

REPORT INFORMATION
  Report Type: 
  Country: None (occurrence: None)
  Receive Date: 20110112
  Receipt Date: 20101227
  Transmission Date: 20110831
  Serious: Yes (Disabling)
  Sender: FDA-Public Use
  Company Number: PHHY2010US81312

PATIENT
  Sex: Female

DRUGS (2)
  1. VIVELLE-DOT [Concomitant]
  2. RECLAST [Suspect]
     Indication: OSTEOPENIA
     Dosage: 5 MG YEARLY
     Route: 042
     Dates: start: 20101115

REACTIONS (5)
  - HEADACHE [None]
  - GASTROINTESTINAL DISORDER [None]
  - MALAISE [None]
  - WEIGHT DECREASED [None]
  - FATIGUE [None]
